FAERS Safety Report 7514855-5 (Version None)
Quarter: 2011Q2

REPORT INFORMATION
  Report Type: 
  Country: None (occurrence: None)
  Receive Date: 20110601
  Receipt Date: 20101221
  Transmission Date: 20111010
  Serious: No
  Sender: FDA-Public Use
  Company Number: US-NOVEN-ALL1-2010-06594

PATIENT
  Sex: Female
  Weight: 68.027 kg

DRUGS (3)
  1. DAYTRANA [Suspect]
     Indication: ATTENTION DEFICIT/HYPERACTIVITY DISORDER
     Dosage: 20 MG, 1X/DAY; QD
     Route: 062
     Dates: start: 20100101, end: 20100501
  2. DAYTRANA [Suspect]
     Dosage: 20 MG, 1X/DAY: QD
     Route: 062
     Dates: start: 20101219
  3. WELLBUTRIN [Concomitant]
     Dosage: TABLET
     Dates: start: 20080101

REACTIONS (6)
  - OFF LABEL USE [None]
  - APPLICATION SITE ERYTHEMA [None]
  - APPLICATION SITE OEDEMA [None]
  - DRUG EXPOSURE DURING PREGNANCY [None]
  - APPLICATION SITE PRURITUS [None]
  - APPLICATION SITE IRRITATION [None]
